FAERS Safety Report 8581709-5 (Version None)
Quarter: 2012Q3

REPORT INFORMATION
  Report Type: 
  Country: None (occurrence: None)
  Receive Date: 20120801
  Receipt Date: 20120801
  Transmission Date: 20120928
  Serious: Yes (Other)
  Sender: FDA-Public Use
  Company Number: None

PATIENT
  Age: 47 Year
  Sex: Female
  Weight: 63.5036 kg

DRUGS (1)
  1. MIRENA [Suspect]
     Indication: CONTRACEPTION
     Dosage: 1 CONTINUOUS USE
     Dates: start: 20120705, end: 20120723

REACTIONS (15)
  - ABDOMINAL PAIN [None]
  - DYSPAREUNIA [None]
  - GAIT DISTURBANCE [None]
  - ARTHRALGIA [None]
  - PRURITUS [None]
  - PELVIC PAIN [None]
  - PAIN IN EXTREMITY [None]
  - HEADACHE [None]
  - SKIN DISORDER [None]
  - IRRITABILITY [None]
  - HYPERACUSIS [None]
  - LOSS OF LIBIDO [None]
  - MUSCULOSKELETAL STIFFNESS [None]
  - PHOTOPHOBIA [None]
  - INSOMNIA [None]
